FAERS Safety Report 9328195 (Version 2)
Quarter: 2013Q3

REPORT INFORMATION
  Report Type: Spontaneous
  Country: US (occurrence: US)
  Receive Date: 20130604
  Receipt Date: 20130816
  Transmission Date: 20140515
  Serious: Yes (Other)
  Sender: FDA-Public Use
  Company Number: US-TEVA-409911USA

PATIENT
  Sex: Female
  Weight: 63.56 kg

DRUGS (2)
  1. COPAXONE [Suspect]
     Indication: MULTIPLE SCLEROSIS
     Dates: start: 20050906, end: 2013
  2. EFFEXOR [Suspect]

REACTIONS (3)
  - Acute pulmonary histoplasmosis [Unknown]
  - Migraine [Recovering/Resolving]
  - Night sweats [Recovered/Resolved]
